FAERS Safety Report 23641430 (Version 1)
Quarter: 2024Q1

REPORT INFORMATION
  Report Type: Spontaneous
  Country: JP (occurrence: JP)
  Receive Date: 20240318
  Receipt Date: 20240318
  Transmission Date: 20240409
  Serious: Yes (Other)
  Sender: FDA-Public Use
  Company Number: JP-MSD-M2024-09469

PATIENT
  Age: 45 Year
  Sex: Female

DRUGS (4)
  1. CANCIDAS [Suspect]
     Active Substance: CASPOFUNGIN ACETATE
     Dosage: UNK
     Route: 041
  2. RUXOLITINIB [Concomitant]
     Active Substance: RUXOLITINIB
     Dosage: 10 MILLIGRAM
     Route: 048
  3. RUXOLITINIB [Concomitant]
     Active Substance: RUXOLITINIB
     Dosage: 5 MILLIGRAM
     Route: 048
  4. SOLU-MEDROL [Concomitant]
     Active Substance: METHYLPREDNISOLONE SODIUM SUCCINATE
     Dosage: 20 MILLIGRAM
     Route: 051

REACTIONS (5)
  - Cystitis haemorrhagic [Unknown]
  - Cytomegalovirus enterocolitis [Unknown]
  - Haematochezia [Unknown]
  - Cytomegalovirus test positive [Unknown]
  - Faeces soft [Unknown]
